FAERS Safety Report 8953659 (Version 1)
Quarter: 2012Q4

REPORT INFORMATION
  Report Type: 
  Country: IT (occurrence: IT)
  Receive Date: 20121206
  Receipt Date: 20121206
  Transmission Date: 20130627
  Serious: Yes (Other)
  Sender: FDA-Public Use
  Company Number: IT-TEVA-373461ISR

PATIENT
  Age: 8 Year
  Sex: Female

DRUGS (2)
  1. RISPERIDONE [Suspect]
     Indication: AGITATION
     Dosage: 2 Milligram Daily;
     Route: 048
     Dates: start: 20120111, end: 20121018
  2. ACIDO VALPROICO [Concomitant]

REACTIONS (3)
  - Precocious puberty [Recovering/Resolving]
  - Psychomotor hyperactivity [Recovering/Resolving]
  - Enuresis [Recovering/Resolving]
